FAERS Safety Report 6671520-4 (Version None)
Quarter: 2010Q2

REPORT INFORMATION
  Report Type: 
  Country: None (occurrence: None)
  Receive Date: 20100407
  Receipt Date: 20100401
  Transmission Date: 20101027
  Serious: Yes (Other)
  Sender: FDA-Public Use
  Company Number: US-ASTRAZENECA-2010SE14334

PATIENT

DRUGS (1)
  1. BUPIVACAINE HYDROCHLORIDE W/EPINEPHRINE [Suspect]
     Route: 008

REACTIONS (1)
  - EXTRASYSTOLES [None]
